FAERS Safety Report 19047972 (Version 6)
Quarter: 2021Q2

REPORT INFORMATION
  Report Type: Report from Study
  Country: ES (occurrence: ES)
  Receive Date: 20210323
  Receipt Date: 20210514
  Transmission Date: 20210717
  Serious: Yes (Hospitalization, Other)
  Sender: FDA-Public Use
  Company Number: ES-GLAXOSMITHKLINE-ES2021GSK060076

PATIENT
  Age: 65 Year
  Sex: Female
  Weight: 65 kg

DRUGS (6)
  1. NIRAPARIB [Suspect]
     Active Substance: NIRAPARIB
     Dosage: 100 MG
     Route: 048
     Dates: start: 20210324, end: 20210326
  2. CABOZANTINIB [Suspect]
     Active Substance: CABOZANTINIB
     Dosage: 20 MG
     Route: 048
     Dates: start: 20210324, end: 20210326
  3. AMLODIPINE + HYDROCHLOROTHIAZIDE + OLMESARTAN [Concomitant]
     Indication: HYPERTENSION
     Dosage: 40/10/25 MG
     Route: 048
     Dates: end: 20210308
  4. NIRAPARIB [Suspect]
     Active Substance: NIRAPARIB
     Indication: TRANSITIONAL CELL CARCINOMA
     Dosage: 200 MG
     Route: 048
     Dates: start: 20210203, end: 20210308
  5. CABOZANTINIB [Suspect]
     Active Substance: CABOZANTINIB
     Indication: TRANSITIONAL CELL CARCINOMA
     Dosage: 20 MG
     Route: 048
     Dates: start: 20210203, end: 20210308
  6. AMLODIPINO [Concomitant]
     Active Substance: AMLODIPINE BESYLATE
     Indication: HYPERTENSION
     Dosage: 10 MG
     Route: 048
     Dates: start: 20210308

REACTIONS (2)
  - Hepatotoxicity [Recovered/Resolved]
  - Hepatotoxicity [Recovered/Resolved]

NARRATIVE: CASE EVENT DATE: 20210308
